FAERS Safety Report 12185452 (Version 1)
Quarter: 2016Q1

REPORT INFORMATION
  Report Type: Report from Study
  Country: AR (occurrence: AR)
  Receive Date: 20160316
  Receipt Date: 20160316
  Transmission Date: 20160526
  Serious: Yes (Death, Hospitalization)
  Sender: FDA-Public Use
  Company Number: PHHY2016AR034614

PATIENT
  Sex: Male

DRUGS (1)
  1. EXJADE [Suspect]
     Active Substance: DEFERASIROX
     Indication: IRON OVERLOAD
     Dosage: UNK
     Route: 065
     Dates: start: 200801

REACTIONS (3)
  - Arrhythmia [Fatal]
  - Respiratory arrest [Fatal]
  - Fibrosis [Fatal]
